FAERS Safety Report 4408704-1 (Version None)
Quarter: 2004Q3

REPORT INFORMATION
  Report Type: 
  Country: None (occurrence: None)
  Receive Date: 20040727
  Receipt Date: 20040719
  Transmission Date: 20050211
  Serious: Yes (Hospitalization)
  Sender: FDA-Public Use
  Company Number: PHEH2004US07789

PATIENT
  Age: 89 Year
  Sex: Female
  Weight: 50 kg

DRUGS (9)
  1. ZELNORM [Suspect]
     Indication: IRRITABLE BOWEL SYNDROME
     Dosage: 6 MG, UNK
     Route: 048
     Dates: start: 20030825
  2. CONTACT LAXATIVES [Suspect]
  3. LEVOXYL [Concomitant]
  4. PAXIL [Concomitant]
  5. DURAGESIC [Concomitant]
     Route: 062
  6. DIAZEPAM [Concomitant]
  7. ZESTRIL [Concomitant]
  8. HYDROCODONE [Concomitant]
  9. PREMARIN [Concomitant]

REACTIONS (3)
  - ABDOMINAL PAIN [None]
  - DIARRHOEA [None]
  - HYPOTENSION [None]
